FAERS Safety Report 4690799-1 (Version None)
Quarter: 2005Q2

REPORT INFORMATION
  Report Type: 
  Country: None (occurrence: None)
  Receive Date: 20050607
  Receipt Date: 20050531
  Transmission Date: 20051028
  Serious: Yes (Hospitalization, Disabling)
  Sender: FDA-Public Use
  Company Number: 200511424BBE

PATIENT
  Age: 67 Year
  Sex: Male
  Weight: 72 kg

DRUGS (11)
  1. HELIXATE FS [Suspect]
     Indication: AORTIC VALVE REPLACEMENT
     Dosage: 3000 IU, TOTAL DAILY INTRAVENOUS; 2000 IU, TOTAL DAILY, INTRAVENOUS
     Route: 042
     Dates: start: 20041124, end: 20041126
  2. HELIXATE FS [Suspect]
     Indication: ARTERIAL BYPASS OPERATION
     Dosage: 3000 IU, TOTAL DAILY INTRAVENOUS; 2000 IU, TOTAL DAILY, INTRAVENOUS
     Route: 042
     Dates: start: 20041124, end: 20041126
  3. HELIXATE FS [Suspect]
     Indication: FACTOR VIII DEFICIENCY
     Dosage: 3000 IU, TOTAL DAILY INTRAVENOUS; 2000 IU, TOTAL DAILY, INTRAVENOUS
     Route: 042
     Dates: start: 20041124, end: 20041126
  4. HELIXATE FS [Suspect]
     Indication: AORTIC VALVE REPLACEMENT
     Dosage: 3000 IU, TOTAL DAILY INTRAVENOUS; 2000 IU, TOTAL DAILY, INTRAVENOUS
     Route: 042
     Dates: start: 20041122
  5. HELIXATE FS [Suspect]
     Indication: ARTERIAL BYPASS OPERATION
     Dosage: 3000 IU, TOTAL DAILY INTRAVENOUS; 2000 IU, TOTAL DAILY, INTRAVENOUS
     Route: 042
     Dates: start: 20041122
  6. HELIXATE FS [Suspect]
     Indication: FACTOR VIII DEFICIENCY
     Dosage: 3000 IU, TOTAL DAILY INTRAVENOUS; 2000 IU, TOTAL DAILY, INTRAVENOUS
     Route: 042
     Dates: start: 20041122
  7. KOGENATE FS [Suspect]
     Dosage: 3000 IU, TOTAL DAILY, INTRAVENOUS
     Route: 042
     Dates: start: 20041126, end: 20041213
  8. KOGENATE FS [Suspect]
  9. KOGENATE FS [Suspect]
  10. KOGENATE FS [Suspect]
  11. HELIXATE FS [Suspect]

REACTIONS (5)
  - ABDOMINAL PAIN [None]
  - ANTI FACTOR VIII ANTIBODY POSITIVE [None]
  - CHOLECYSTITIS ACUTE [None]
  - DRUG INEFFECTIVE [None]
  - PERICARDIAL HAEMORRHAGE [None]
